FAERS Safety Report 17019782 (Version 1)
Quarter: 2019Q4

REPORT INFORMATION
  Report Type: Spontaneous
  Country: US (occurrence: US)
  Receive Date: 20191112
  Receipt Date: 20191112
  Transmission Date: 20200122
  Serious: No
  Sender: FDA-Public Use
  Company Number: US-BTG-201900122

PATIENT
  Age: 18 Year
  Sex: Male

DRUGS (5)
  1. CROFAB [Suspect]
     Active Substance: CROTALIDAE POLYVALENT IMMUNE FAB (OVINE)
     Indication: SNAKE BITE
     Dosage: FIRST 2 VIALS (INITIAL CONTROL) WITHIN 3 HOURS, WITHIN AN HOUR OR 2 OF FIRST MAINTENANCE DOSE.
     Route: 042
     Dates: start: 20190630, end: 20190630
  2. CROFAB [Suspect]
     Active Substance: CROTALIDAE POLYVALENT IMMUNE FAB (OVINE)
     Indication: SNAKE BITE
     Dosage: 2 VIALS LATE MORNING (MAINTENANCE DOSES, APPROXIMATELY EVERY 6 HOURS).
     Route: 042
     Dates: start: 20190630, end: 20190630
  3. CROFAB [Suspect]
     Active Substance: CROTALIDAE POLYVALENT IMMUNE FAB (OVINE)
     Indication: SNAKE BITE
     Dosage: 2 VIALS MID-AFTERNOON (MAINTENANCE DOSES, APPROXIMATELY EVERY 6 HOURS).
     Route: 042
     Dates: start: 20190630, end: 20190630
  4. CROFAB [Suspect]
     Active Substance: CROTALIDAE POLYVALENT IMMUNE FAB (OVINE)
     Indication: SNAKE BITE
     Dosage: FOUR (4) VIALS (INITIAL CONTROL) RECEIVED WITHIN 1HR 45 MIN OF THE SNAKE BITE.
     Route: 042
     Dates: start: 20190630, end: 20190630
  5. CROFAB [Suspect]
     Active Substance: CROTALIDAE POLYVALENT IMMUNE FAB (OVINE)
     Indication: SNAKE BITE
     Dosage: 2 VIALS EARLY EVENING (MAINTENANCE DOSES, APPROXIMATELY EVERY 6 HOURS).
     Route: 042
     Dates: start: 20190630, end: 20190630

REACTIONS (4)
  - Gait disturbance [Recovered/Resolved]
  - Intercepted medication error [Unknown]
  - Peripheral swelling [Recovered/Resolved]
  - Tenderness [Recovered/Resolved]

NARRATIVE: CASE EVENT DATE: 20190630
